FAERS Safety Report 24766308 (Version 9)
Quarter: 2025Q4

REPORT INFORMATION
  Report Type: Spontaneous
  Country: US (occurrence: US)
  Receive Date: 20241223
  Receipt Date: 20251121
  Transmission Date: 20260118
  Serious: Yes (Hospitalization, Other)
  Sender: PFIZER
  Company Number: US-PFIZER INC-PV202400093213

PATIENT
  Age: 69 Year
  Sex: Male
  Weight: 74.286 kg

DRUGS (321)
  1. TUKYSA [Suspect]
     Active Substance: TUCATINIB
     Indication: Colorectal cancer metastatic
     Dosage: UNK
     Dates: start: 20240426
  2. TUKYSA [Suspect]
     Active Substance: TUCATINIB
     Dosage: 300 MG, 2X/DAY
     Route: 048
     Dates: start: 202404
  3. TUKYSA [Suspect]
     Active Substance: TUCATINIB
     Dosage: UNK
     Dates: end: 20250519
  4. TUKYSA [Suspect]
     Active Substance: TUCATINIB
     Dosage: UNK
     Dates: start: 20250609
  5. TUKYSA [Suspect]
     Active Substance: TUCATINIB
     Dosage: 300 MG ORALLY EVERY 12 HOURS
     Route: 048
     Dates: start: 20250610
  6. TRAZIMERA [Suspect]
     Active Substance: TRASTUZUMAB-QYYP
     Indication: Colorectal cancer metastatic
     Dosage: UNK
     Route: 042
     Dates: start: 20250623
  7. TRAZIMERA [Suspect]
     Active Substance: TRASTUZUMAB-QYYP
     Dosage: UNK
     Route: 042
     Dates: start: 20250630
  8. TRAZIMERA [Suspect]
     Active Substance: TRASTUZUMAB-QYYP
     Dosage: D/C^D
     Route: 042
     Dates: start: 20250721
  9. TRAZIMERA [Suspect]
     Active Substance: TRASTUZUMAB-QYYP
     Dosage: UNK
     Route: 042
     Dates: start: 20250728
  10. TRAZIMERA [Suspect]
     Active Substance: TRASTUZUMAB-QYYP
     Dosage: UNK
     Route: 042
     Dates: start: 20250811
  11. TRAZIMERA [Suspect]
     Active Substance: TRASTUZUMAB-QYYP
     Dosage: UNK
     Route: 042
     Dates: start: 20250828
  12. TRAZIMERA [Suspect]
     Active Substance: TRASTUZUMAB-QYYP
     Dosage: UNK
     Route: 042
     Dates: start: 20250901
  13. HERCEPTIN [Suspect]
     Active Substance: TRASTUZUMAB
     Indication: Colorectal cancer metastatic
     Dosage: UNK
     Dates: start: 20240408
  14. HERCEPTIN [Suspect]
     Active Substance: TRASTUZUMAB
     Dosage: UNK
     Route: 042
     Dates: start: 20250623
  15. HERCEPTIN [Suspect]
     Active Substance: TRASTUZUMAB
     Dosage: UNK
     Route: 042
     Dates: start: 20250630
  16. HERCEPTIN [Suspect]
     Active Substance: TRASTUZUMAB
     Dosage: 410 MG
     Route: 042
     Dates: start: 20250721
  17. HERCEPTIN [Suspect]
     Active Substance: TRASTUZUMAB
     Dosage: UNK
     Route: 042
     Dates: start: 20250728
  18. HERCEPTIN [Suspect]
     Active Substance: TRASTUZUMAB
     Dosage: 410 MG
     Route: 042
     Dates: start: 20250811
  19. HERCEPTIN [Suspect]
     Active Substance: TRASTUZUMAB
     Dosage: UNK
     Route: 042
     Dates: start: 20250828
  20. HERCEPTIN [Suspect]
     Active Substance: TRASTUZUMAB
     Dosage: UNK
     Dates: start: 20250901
  21. HERCEPTIN [Suspect]
     Active Substance: TRASTUZUMAB
     Dosage: 410 MG
     Route: 042
     Dates: start: 20250902
  22. KANJINTI [Suspect]
     Active Substance: TRASTUZUMAB-ANNS
     Indication: Colorectal cancer metastatic
     Dosage: 450 MG
     Route: 042
     Dates: start: 20250407
  23. KANJINTI [Suspect]
     Active Substance: TRASTUZUMAB-ANNS
     Dosage: 410 MG
     Route: 042
     Dates: start: 20250428
  24. KANJINTI [Suspect]
     Active Substance: TRASTUZUMAB-ANNS
     Dosage: 410 MG
     Route: 042
     Dates: start: 20250519
  25. KANJINTI [Suspect]
     Active Substance: TRASTUZUMAB-ANNS
     Dosage: 410 MG
     Route: 042
     Dates: start: 20250609
  26. KANJINTI [Suspect]
     Active Substance: TRASTUZUMAB-ANNS
     Dosage: UNK
     Route: 042
     Dates: start: 20250623
  27. KANJINTI [Suspect]
     Active Substance: TRASTUZUMAB-ANNS
     Dosage: UNK
     Route: 042
     Dates: start: 20250811
  28. KANJINTI [Suspect]
     Active Substance: TRASTUZUMAB-ANNS
     Dosage: UNK
     Route: 042
     Dates: start: 20250416
  29. KANJINTI [Suspect]
     Active Substance: TRASTUZUMAB-ANNS
     Dosage: UNK
     Route: 042
     Dates: start: 20250421
  30. KANJINTI [Suspect]
     Active Substance: TRASTUZUMAB-ANNS
     Dosage: 410 MG
     Route: 042
     Dates: start: 20250630
  31. KANJINTI [Suspect]
     Active Substance: TRASTUZUMAB-ANNS
     Dosage: UNK
     Route: 042
  32. KANJINTI [Suspect]
     Active Substance: TRASTUZUMAB-ANNS
     Dosage: D/C^D
     Route: 042
     Dates: start: 20250821
  33. KANJINTI [Suspect]
     Active Substance: TRASTUZUMAB-ANNS
     Dosage: UNK
     Route: 042
     Dates: start: 20250728
  34. KANJINTI [Suspect]
     Active Substance: TRASTUZUMAB-ANNS
     Dosage: UNK
     Route: 042
     Dates: start: 20250811
  35. KANJINTI [Suspect]
     Active Substance: TRASTUZUMAB-ANNS
     Dosage: UNK
     Route: 042
     Dates: start: 20250828
  36. KANJINTI [Suspect]
     Active Substance: TRASTUZUMAB-ANNS
     Dosage: UNK
     Route: 042
     Dates: start: 20250901
  37. ONDANSETRON [Concomitant]
     Active Substance: ONDANSETRON
     Indication: Nausea
     Dosage: 1 TABLET, DISINTEGRATING ORALLY EVERY 8 HOURS AS NEEDED FOR NAUSEA AND VOMITING
     Route: 048
  38. ONDANSETRON [Concomitant]
     Active Substance: ONDANSETRON
     Indication: Vomiting
     Dosage: UNK
     Route: 048
     Dates: start: 20250623
  39. ONDANSETRON [Concomitant]
     Active Substance: ONDANSETRON
     Dosage: 8 MG, AS NEEDED
     Dates: start: 20250630
  40. ONDANSETRON [Concomitant]
     Active Substance: ONDANSETRON
     Dosage: 8 MG, AS NEEDED
     Route: 048
     Dates: start: 20250621
  41. ONDANSETRON [Concomitant]
     Active Substance: ONDANSETRON
     Dosage: UNK
     Route: 048
     Dates: start: 20250628
  42. ONDANSETRON [Concomitant]
     Active Substance: ONDANSETRON
     Dosage: 8 MG, AS NEEDED
     Route: 048
     Dates: start: 20250811
  43. ONDANSETRON [Concomitant]
     Active Substance: ONDANSETRON
     Dosage: 8 MG, AS NEEDED
     Route: 048
     Dates: start: 20250828
  44. ONDANSETRON [Concomitant]
     Active Substance: ONDANSETRON
     Dosage: UNK
     Route: 048
     Dates: start: 20250901
  45. ONDANSETRON [Concomitant]
     Active Substance: ONDANSETRON
     Dosage: UNK
  46. LACTULOSE [Concomitant]
     Active Substance: LACTULOSE
     Dosage: UNK
     Route: 048
     Dates: start: 20250407
  47. LACTULOSE [Concomitant]
     Active Substance: LACTULOSE
     Dosage: UNK
     Route: 048
     Dates: start: 20250411
  48. LACTULOSE [Concomitant]
     Active Substance: LACTULOSE
     Dosage: UNK
     Route: 048
     Dates: start: 20250416
  49. LACTULOSE [Concomitant]
     Active Substance: LACTULOSE
     Dosage: UNK
     Route: 048
     Dates: start: 20250421
  50. LACTULOSE [Concomitant]
     Active Substance: LACTULOSE
     Dosage: UNK
     Route: 048
     Dates: start: 20250428
  51. LACTULOSE [Concomitant]
     Active Substance: LACTULOSE
     Dosage: 0.66 G/ML, DAILY
     Route: 048
     Dates: start: 20250519
  52. LACTULOSE [Concomitant]
     Active Substance: LACTULOSE
     Dosage: 0.66 G/ML, DAILY
     Route: 048
     Dates: start: 20250609
  53. LACTULOSE [Concomitant]
     Active Substance: LACTULOSE
     Dosage: 0.66 G/ML (LACTUL OSE 10 GM/15 ML SOLUTION)
     Route: 048
     Dates: start: 20250623
  54. LACTULOSE [Concomitant]
     Active Substance: LACTULOSE
     Dosage: 0.66 G/ML, DAILY
     Route: 048
     Dates: start: 20250630
  55. LACTULOSE [Concomitant]
     Active Substance: LACTULOSE
     Dosage: 0.66 G/ML, DAILY
     Route: 048
     Dates: start: 20250721
  56. LACTULOSE [Concomitant]
     Active Substance: LACTULOSE
     Dosage: UNK
     Route: 048
     Dates: start: 20250728
  57. LACTULOSE [Concomitant]
     Active Substance: LACTULOSE
     Dosage: 0.66 G/ML, DAILY
     Route: 048
     Dates: start: 20250811
  58. LACTULOSE [Concomitant]
     Active Substance: LACTULOSE
     Dosage: 0.66 G/ML, DAILY
     Route: 048
     Dates: start: 20250828
  59. LACTULOSE [Concomitant]
     Active Substance: LACTULOSE
     Dosage: UNK
     Route: 048
     Dates: start: 20250901
  60. LACTULOSE [Concomitant]
     Active Substance: LACTULOSE
     Dosage: 0.66 G/ML, DAILY
     Dates: start: 20250902
  61. LIDOCAINE\PRILOCAINE [Concomitant]
     Active Substance: LIDOCAINE\PRILOCAINE
     Dosage: UNK
     Route: 061
     Dates: start: 20250407
  62. LIDOCAINE\PRILOCAINE [Concomitant]
     Active Substance: LIDOCAINE\PRILOCAINE
     Dosage: UNK
     Route: 061
     Dates: start: 20250411
  63. LIDOCAINE\PRILOCAINE [Concomitant]
     Active Substance: LIDOCAINE\PRILOCAINE
     Dosage: UNK
     Route: 061
     Dates: start: 20250416
  64. LIDOCAINE\PRILOCAINE [Concomitant]
     Active Substance: LIDOCAINE\PRILOCAINE
     Dosage: UNK
     Route: 061
     Dates: start: 20250421
  65. LIDOCAINE\PRILOCAINE [Concomitant]
     Active Substance: LIDOCAINE\PRILOCAINE
     Dosage: UNK
     Route: 061
     Dates: start: 20250428
  66. LIDOCAINE\PRILOCAINE [Concomitant]
     Active Substance: LIDOCAINE\PRILOCAINE
     Dosage: 2.5-2.5 % CREAM 1 APPLICATION
     Route: 061
     Dates: start: 20250519
  67. LIDOCAINE\PRILOCAINE [Concomitant]
     Active Substance: LIDOCAINE\PRILOCAINE
     Dosage: 2.5-2.5 % CREAM 1 APPLICATION
     Route: 061
     Dates: start: 20250609
  68. LIDOCAINE\PRILOCAINE [Concomitant]
     Active Substance: LIDOCAINE\PRILOCAINE
     Dosage: UNK
     Route: 061
     Dates: start: 20250623
  69. LIDOCAINE\PRILOCAINE [Concomitant]
     Active Substance: LIDOCAINE\PRILOCAINE
     Dosage: 2.5-2.5 % CREAM 1 APPLICATION
     Route: 061
     Dates: start: 20250630
  70. LIDOCAINE\PRILOCAINE [Concomitant]
     Active Substance: LIDOCAINE\PRILOCAINE
     Dosage: 2.5-2.5 % CREAM 1 APPLICATION
     Route: 061
     Dates: start: 20250721
  71. LIDOCAINE\PRILOCAINE [Concomitant]
     Active Substance: LIDOCAINE\PRILOCAINE
     Dosage: UNK
     Route: 061
     Dates: start: 20250728
  72. LIDOCAINE\PRILOCAINE [Concomitant]
     Active Substance: LIDOCAINE\PRILOCAINE
     Dosage: 2.5-2.5 % CREAM 1 APPLICATION
     Route: 061
     Dates: start: 20250811
  73. LIDOCAINE\PRILOCAINE [Concomitant]
     Active Substance: LIDOCAINE\PRILOCAINE
     Dosage: 2.5-2.5 % CREAM 1 APPLICATION
     Route: 061
     Dates: start: 20250828
  74. LIDOCAINE\PRILOCAINE [Concomitant]
     Active Substance: LIDOCAINE\PRILOCAINE
     Dosage: UNK
     Route: 061
     Dates: start: 20250901
  75. LIDOCAINE\PRILOCAINE [Concomitant]
     Active Substance: LIDOCAINE\PRILOCAINE
     Dosage: 2.5-2.5 % CREAM 1 APPLICATION
     Route: 061
     Dates: start: 20250902
  76. ATIVAN [Concomitant]
     Active Substance: LORAZEPAM
     Dosage: UNK
     Route: 048
     Dates: start: 20250407
  77. ATIVAN [Concomitant]
     Active Substance: LORAZEPAM
     Dosage: UNK
     Route: 048
     Dates: start: 20250411
  78. ATIVAN [Concomitant]
     Active Substance: LORAZEPAM
     Dosage: UNK
     Route: 048
     Dates: start: 20250416
  79. ATIVAN [Concomitant]
     Active Substance: LORAZEPAM
     Dosage: UNK
  80. ATIVAN [Concomitant]
     Active Substance: LORAZEPAM
     Dosage: UNK
     Route: 048
     Dates: start: 20250421
  81. ATIVAN [Concomitant]
     Active Substance: LORAZEPAM
     Dosage: UNK
     Route: 048
     Dates: start: 20250428
  82. ATIVAN [Concomitant]
     Active Substance: LORAZEPAM
     Dosage: 1 MG
     Route: 048
     Dates: start: 20250519
  83. ATIVAN [Concomitant]
     Active Substance: LORAZEPAM
     Dosage: 1 MG TABLET;  RX: 0.5 MG TABLET
     Route: 048
     Dates: start: 20250609
  84. ATIVAN [Concomitant]
     Active Substance: LORAZEPAM
     Dosage: UNK
     Route: 048
     Dates: start: 20250623
  85. ATIVAN [Concomitant]
     Active Substance: LORAZEPAM
     Dosage: 0.5 MG
     Route: 048
     Dates: start: 20250630
  86. ATIVAN [Concomitant]
     Active Substance: LORAZEPAM
     Dosage: 0.5 MG
     Route: 048
     Dates: start: 20250721
  87. ATIVAN [Concomitant]
     Active Substance: LORAZEPAM
     Dosage: UNK
     Route: 048
     Dates: start: 20250728
  88. ATIVAN [Concomitant]
     Active Substance: LORAZEPAM
     Dosage: 0.5 MG
     Route: 048
     Dates: start: 20250811
  89. ATIVAN [Concomitant]
     Active Substance: LORAZEPAM
     Dosage: 0.5 UNK
     Route: 048
     Dates: start: 20250828
  90. ATIVAN [Concomitant]
     Active Substance: LORAZEPAM
     Dosage: UNK
     Dates: start: 20250901
  91. ATIVAN [Concomitant]
     Active Substance: LORAZEPAM
     Dosage: 0.5 MG
     Route: 048
     Dates: start: 20250902
  92. EPINEPHRINE [Concomitant]
     Active Substance: EPINEPHRINE
     Dosage: 0.3 MG
     Route: 030
     Dates: start: 20250407
  93. EPINEPHRINE [Concomitant]
     Active Substance: EPINEPHRINE
     Dosage: UNK
     Route: 030
     Dates: start: 20250411
  94. EPINEPHRINE [Concomitant]
     Active Substance: EPINEPHRINE
     Dosage: UNK
     Route: 030
     Dates: start: 20250416
  95. EPINEPHRINE [Concomitant]
     Active Substance: EPINEPHRINE
     Dosage: UNK
     Route: 030
     Dates: start: 20250421
  96. EPINEPHRINE [Concomitant]
     Active Substance: EPINEPHRINE
     Dosage: 0.3 MG
     Route: 030
     Dates: start: 20250428
  97. EPINEPHRINE [Concomitant]
     Active Substance: EPINEPHRINE
     Dosage: 0.3 MG
     Route: 030
     Dates: start: 20250519
  98. EPINEPHRINE [Concomitant]
     Active Substance: EPINEPHRINE
     Dosage: 0.3 MG
     Route: 030
     Dates: start: 20250609
  99. EPINEPHRINE [Concomitant]
     Active Substance: EPINEPHRINE
     Dosage: UNK
     Route: 030
     Dates: start: 20250623
  100. EPINEPHRINE [Concomitant]
     Active Substance: EPINEPHRINE
     Dosage: 0.3 MG
     Route: 030
     Dates: start: 20250630
  101. EPINEPHRINE [Concomitant]
     Active Substance: EPINEPHRINE
     Dosage: 0.3 MG
     Route: 030
     Dates: start: 20250721
  102. EPINEPHRINE [Concomitant]
     Active Substance: EPINEPHRINE
     Dosage: UNK
     Route: 030
     Dates: start: 20250728
  103. EPINEPHRINE [Concomitant]
     Active Substance: EPINEPHRINE
     Dosage: 0.3 MG
     Route: 030
     Dates: start: 20250811
  104. EPINEPHRINE [Concomitant]
     Active Substance: EPINEPHRINE
     Dosage: UNK
     Route: 030
     Dates: start: 20250828
  105. EPINEPHRINE [Concomitant]
     Active Substance: EPINEPHRINE
     Dosage: UNK
     Route: 030
     Dates: start: 20250901
  106. EPINEPHRINE [Concomitant]
     Active Substance: EPINEPHRINE
     Dosage: 0.3 MG
     Route: 030
     Dates: start: 20250902
  107. DIPHENHYDRAMINE [Concomitant]
     Active Substance: DIPHENHYDRAMINE
     Dosage: 50 MG
     Route: 042
     Dates: start: 20250407
  108. DIPHENHYDRAMINE [Concomitant]
     Active Substance: DIPHENHYDRAMINE
     Dosage: UNK
     Route: 042
     Dates: start: 20250411
  109. DIPHENHYDRAMINE [Concomitant]
     Active Substance: DIPHENHYDRAMINE
     Dosage: UNK
     Route: 042
     Dates: start: 20250416
  110. DIPHENHYDRAMINE [Concomitant]
     Active Substance: DIPHENHYDRAMINE
     Dosage: UNK
     Route: 042
     Dates: start: 20250421
  111. DIPHENHYDRAMINE [Concomitant]
     Active Substance: DIPHENHYDRAMINE
     Dosage: 50 MG
     Route: 042
     Dates: start: 20250428
  112. DIPHENHYDRAMINE [Concomitant]
     Active Substance: DIPHENHYDRAMINE
     Dosage: 50 MG
     Route: 042
     Dates: start: 20250519
  113. DIPHENHYDRAMINE [Concomitant]
     Active Substance: DIPHENHYDRAMINE
     Dosage: 50 MG
     Route: 042
     Dates: start: 20250609
  114. DIPHENHYDRAMINE [Concomitant]
     Active Substance: DIPHENHYDRAMINE
     Dosage: UNK
     Route: 042
     Dates: start: 20250623
  115. DIPHENHYDRAMINE [Concomitant]
     Active Substance: DIPHENHYDRAMINE
     Dosage: 50 MG
     Route: 042
     Dates: start: 20250630
  116. DIPHENHYDRAMINE [Concomitant]
     Active Substance: DIPHENHYDRAMINE
     Dosage: 50 MG
     Route: 042
     Dates: start: 20250721
  117. DIPHENHYDRAMINE [Concomitant]
     Active Substance: DIPHENHYDRAMINE
     Dosage: UNK
     Route: 042
     Dates: start: 20250728
  118. DIPHENHYDRAMINE [Concomitant]
     Active Substance: DIPHENHYDRAMINE
     Dosage: 50 MG
     Route: 042
     Dates: start: 20250811
  119. DIPHENHYDRAMINE [Concomitant]
     Active Substance: DIPHENHYDRAMINE
     Dosage: UNK
     Route: 042
     Dates: start: 20250828
  120. DIPHENHYDRAMINE [Concomitant]
     Active Substance: DIPHENHYDRAMINE
     Dosage: UNK
     Route: 042
     Dates: start: 20250901
  121. DIPHENHYDRAMINE [Concomitant]
     Active Substance: DIPHENHYDRAMINE
     Dosage: 50 MG
     Route: 042
     Dates: start: 20250902
  122. FAMOTIDINE [Concomitant]
     Active Substance: FAMOTIDINE
     Dosage: 20 MG
     Route: 042
     Dates: start: 20250407
  123. FAMOTIDINE [Concomitant]
     Active Substance: FAMOTIDINE
     Dosage: UNK
     Route: 042
     Dates: start: 20250411
  124. FAMOTIDINE [Concomitant]
     Active Substance: FAMOTIDINE
     Dosage: UNK
     Route: 042
     Dates: start: 20250416
  125. FAMOTIDINE [Concomitant]
     Active Substance: FAMOTIDINE
     Dosage: UNK
     Route: 042
     Dates: start: 20250421
  126. FAMOTIDINE [Concomitant]
     Active Substance: FAMOTIDINE
     Dosage: 20 MG
     Route: 042
     Dates: start: 20250428
  127. FAMOTIDINE [Concomitant]
     Active Substance: FAMOTIDINE
     Dosage: 20 MG
     Route: 042
     Dates: start: 20250519
  128. FAMOTIDINE [Concomitant]
     Active Substance: FAMOTIDINE
     Dosage: 20 MG
     Route: 042
     Dates: start: 20250609
  129. FAMOTIDINE [Concomitant]
     Active Substance: FAMOTIDINE
     Dosage: UNK
     Route: 042
     Dates: start: 20250623
  130. FAMOTIDINE [Concomitant]
     Active Substance: FAMOTIDINE
     Dosage: 20 MG
     Route: 042
     Dates: start: 20250630
  131. FAMOTIDINE [Concomitant]
     Active Substance: FAMOTIDINE
     Dosage: 20 MG
     Route: 042
     Dates: start: 20250721
  132. FAMOTIDINE [Concomitant]
     Active Substance: FAMOTIDINE
     Dosage: UNK
     Route: 042
     Dates: start: 20250728
  133. FAMOTIDINE [Concomitant]
     Active Substance: FAMOTIDINE
     Dosage: 20 MG
     Route: 042
     Dates: start: 20250811
  134. FAMOTIDINE [Concomitant]
     Active Substance: FAMOTIDINE
     Dosage: UNK
     Route: 042
     Dates: start: 20250828
  135. FAMOTIDINE [Concomitant]
     Active Substance: FAMOTIDINE
     Dosage: UNK
     Route: 042
     Dates: start: 20250901
  136. HYDROCORTISONE [Concomitant]
     Active Substance: HYDROCORTISONE
     Dosage: 100 MG
     Route: 042
     Dates: start: 20250407
  137. HYDROCORTISONE [Concomitant]
     Active Substance: HYDROCORTISONE
     Dosage: UNK
     Route: 042
     Dates: start: 20250411
  138. HYDROCORTISONE [Concomitant]
     Active Substance: HYDROCORTISONE
     Dosage: UNK
     Route: 042
     Dates: start: 20250416
  139. HYDROCORTISONE [Concomitant]
     Active Substance: HYDROCORTISONE
     Dosage: UNK
     Route: 042
     Dates: start: 20210421
  140. HYDROCORTISONE [Concomitant]
     Active Substance: HYDROCORTISONE
     Dosage: 100 MG
     Route: 042
     Dates: start: 20250428
  141. HYDROCORTISONE [Concomitant]
     Active Substance: HYDROCORTISONE
     Dosage: 100 MG
     Route: 042
     Dates: start: 20250519
  142. HYDROCORTISONE [Concomitant]
     Active Substance: HYDROCORTISONE
     Dosage: 100 MG
     Route: 042
     Dates: start: 20250609
  143. HYDROCORTISONE [Concomitant]
     Active Substance: HYDROCORTISONE
     Dosage: UNK
     Route: 042
     Dates: start: 20250623
  144. HYDROCORTISONE [Concomitant]
     Active Substance: HYDROCORTISONE
     Dosage: 100 MG
     Route: 042
     Dates: start: 20250630
  145. HYDROCORTISONE [Concomitant]
     Active Substance: HYDROCORTISONE
     Dosage: 100 MG
     Route: 042
     Dates: start: 20250721
  146. HYDROCORTISONE [Concomitant]
     Active Substance: HYDROCORTISONE
     Dosage: UNK
     Route: 042
     Dates: start: 20250728
  147. HYDROCORTISONE [Concomitant]
     Active Substance: HYDROCORTISONE
     Dosage: 100 MG
     Route: 042
     Dates: start: 20250811
  148. HYDROCORTISONE [Concomitant]
     Active Substance: HYDROCORTISONE
     Dosage: UNK
     Route: 042
     Dates: start: 20250828
  149. HYDROCORTISONE [Concomitant]
     Active Substance: HYDROCORTISONE
     Dosage: UNK
     Route: 042
     Dates: start: 20250901
  150. HYDROCORTISONE [Concomitant]
     Active Substance: HYDROCORTISONE
     Dosage: 100 MG
     Route: 042
     Dates: start: 20250902
  151. METHYLPREDNISOLONE [Concomitant]
     Active Substance: METHYLPREDNISOLONE
     Dosage: 125 MG
     Route: 042
     Dates: start: 20250407
  152. METHYLPREDNISOLONE [Concomitant]
     Active Substance: METHYLPREDNISOLONE
     Dosage: UNK
     Route: 042
     Dates: start: 20250411
  153. METHYLPREDNISOLONE [Concomitant]
     Active Substance: METHYLPREDNISOLONE
     Dosage: UNK
     Route: 042
     Dates: start: 20250416
  154. METHYLPREDNISOLONE [Concomitant]
     Active Substance: METHYLPREDNISOLONE
     Dosage: UNK
     Route: 042
     Dates: start: 20250421
  155. METHYLPREDNISOLONE [Concomitant]
     Active Substance: METHYLPREDNISOLONE
     Dosage: 125 MG
     Route: 042
     Dates: start: 20250428
  156. METHYLPREDNISOLONE [Concomitant]
     Active Substance: METHYLPREDNISOLONE
     Dosage: 125 MG
     Route: 042
     Dates: start: 20250519
  157. METHYLPREDNISOLONE [Concomitant]
     Active Substance: METHYLPREDNISOLONE
     Dosage: 125 MG
     Route: 042
     Dates: start: 20250609
  158. METHYLPREDNISOLONE [Concomitant]
     Active Substance: METHYLPREDNISOLONE
     Dosage: UNK
     Route: 042
     Dates: start: 20250623
  159. METHYLPREDNISOLONE [Concomitant]
     Active Substance: METHYLPREDNISOLONE
     Dosage: 125 MG
     Route: 042
     Dates: start: 20250630
  160. METHYLPREDNISOLONE [Concomitant]
     Active Substance: METHYLPREDNISOLONE
     Dosage: 125 MG
     Route: 042
     Dates: start: 20250721
  161. METHYLPREDNISOLONE [Concomitant]
     Active Substance: METHYLPREDNISOLONE
     Dosage: UNK
     Route: 042
     Dates: start: 20250728
  162. METHYLPREDNISOLONE [Concomitant]
     Active Substance: METHYLPREDNISOLONE
     Dosage: UNK
     Route: 042
     Dates: start: 20250811
  163. METHYLPREDNISOLONE [Concomitant]
     Active Substance: METHYLPREDNISOLONE
     Dosage: UNK
     Route: 042
     Dates: start: 20250828
  164. METHYLPREDNISOLONE [Concomitant]
     Active Substance: METHYLPREDNISOLONE
     Dosage: UNK
     Route: 042
     Dates: start: 20250901
  165. METHYLPREDNISOLONE [Concomitant]
     Active Substance: METHYLPREDNISOLONE
     Dosage: 125 UNK
     Route: 042
     Dates: start: 20250902
  166. PROCHLORPERAZINE EDISYLATE [Concomitant]
     Active Substance: PROCHLORPERAZINE EDISYLATE
     Indication: Nausea
     Dosage: UNK
     Route: 048
     Dates: start: 20250407
  167. PROCHLORPERAZINE EDISYLATE [Concomitant]
     Active Substance: PROCHLORPERAZINE EDISYLATE
     Dosage: UNK
     Route: 048
     Dates: start: 20250411
  168. PROCHLORPERAZINE EDISYLATE [Concomitant]
     Active Substance: PROCHLORPERAZINE EDISYLATE
     Dosage: UNK
     Route: 048
     Dates: start: 20250416
  169. PROCHLORPERAZINE EDISYLATE [Concomitant]
     Active Substance: PROCHLORPERAZINE EDISYLATE
     Dosage: UNK
     Route: 048
     Dates: start: 20250421
  170. PROCHLORPERAZINE EDISYLATE [Concomitant]
     Active Substance: PROCHLORPERAZINE EDISYLATE
     Dosage: UNK
     Route: 048
     Dates: start: 20250428
  171. PROCHLORPERAZINE EDISYLATE [Concomitant]
     Active Substance: PROCHLORPERAZINE EDISYLATE
     Dosage: 10 MG, 4X/DAY(10 MG Q6H PRN)
     Dates: start: 20250519
  172. PROCHLORPERAZINE EDISYLATE [Concomitant]
     Active Substance: PROCHLORPERAZINE EDISYLATE
     Dosage: 10 MG, 4X/DAY(10 MG Q6H PRN)
     Route: 048
     Dates: start: 20250609
  173. PROCHLORPERAZINE EDISYLATE [Concomitant]
     Active Substance: PROCHLORPERAZINE EDISYLATE
     Dosage: UNK
     Route: 048
     Dates: start: 20250623
  174. PROCHLORPERAZINE EDISYLATE [Concomitant]
     Active Substance: PROCHLORPERAZINE EDISYLATE
     Dosage: 10 MG, 4X/DAY
     Route: 048
     Dates: start: 20250630
  175. PROCHLORPERAZINE EDISYLATE [Concomitant]
     Active Substance: PROCHLORPERAZINE EDISYLATE
     Dosage: 10 MG, 4X/DAY
     Route: 048
     Dates: start: 20250721
  176. PROCHLORPERAZINE EDISYLATE [Concomitant]
     Active Substance: PROCHLORPERAZINE EDISYLATE
     Dosage: UNK
     Route: 048
     Dates: start: 20250728
  177. PROCHLORPERAZINE EDISYLATE [Concomitant]
     Active Substance: PROCHLORPERAZINE EDISYLATE
     Dosage: 10 MG, 4X/DAY
     Route: 048
     Dates: start: 20250811
  178. PROCHLORPERAZINE EDISYLATE [Concomitant]
     Active Substance: PROCHLORPERAZINE EDISYLATE
     Dosage: 10 MG, 4X/DAY
     Route: 048
     Dates: start: 20250828
  179. PROCHLORPERAZINE EDISYLATE [Concomitant]
     Active Substance: PROCHLORPERAZINE EDISYLATE
     Dosage: UNK
     Route: 048
     Dates: start: 20250901
  180. PROCHLORPERAZINE EDISYLATE [Concomitant]
     Active Substance: PROCHLORPERAZINE EDISYLATE
     Dosage: 10 MG
     Route: 048
     Dates: start: 20250902
  181. TRIAMCINOLONE [Concomitant]
     Active Substance: TRIAMCINOLONE
     Dosage: UNK
     Route: 061
     Dates: start: 20250407
  182. TRIAMCINOLONE [Concomitant]
     Active Substance: TRIAMCINOLONE
     Dosage: UNK
     Route: 061
     Dates: start: 20250411
  183. TRIAMCINOLONE [Concomitant]
     Active Substance: TRIAMCINOLONE
     Dosage: UNK
     Route: 061
     Dates: start: 20250416
  184. TRIAMCINOLONE [Concomitant]
     Active Substance: TRIAMCINOLONE
     Dosage: UNK
     Route: 061
     Dates: start: 20250421
  185. TRIAMCINOLONE [Concomitant]
     Active Substance: TRIAMCINOLONE
     Dosage: UNK
     Route: 061
     Dates: start: 20250428
  186. TRIAMCINOLONE [Concomitant]
     Active Substance: TRIAMCINOLONE
     Dosage: 0.1 %, 2X/DAY(0.1 % CREAM 1 APPLICATION BID)
     Route: 061
     Dates: start: 20250519
  187. TRIAMCINOLONE [Concomitant]
     Active Substance: TRIAMCINOLONE
     Dosage: 0.1 %, 2X/DAY(0.1 % CREAM 1 APPLICATION BID)
     Route: 061
     Dates: start: 20250609
  188. TRIAMCINOLONE [Concomitant]
     Active Substance: TRIAMCINOLONE
     Dosage: UNK
     Route: 061
     Dates: start: 20250623
  189. TRIAMCINOLONE [Concomitant]
     Active Substance: TRIAMCINOLONE
     Dosage: 0.1 %, 2X/DAY(0.1 % CREAM 1 APPLICATION BID)
     Route: 061
     Dates: start: 20250630
  190. TRIAMCINOLONE [Concomitant]
     Active Substance: TRIAMCINOLONE
     Dosage: 0.1 %, 2X/DAY(0.1 % CREAM 1 APPLICATION BID)
     Route: 061
     Dates: start: 20250721
  191. TRIAMCINOLONE [Concomitant]
     Active Substance: TRIAMCINOLONE
     Dosage: UNK
     Route: 061
     Dates: start: 20250728
  192. TRIAMCINOLONE [Concomitant]
     Active Substance: TRIAMCINOLONE
     Dosage: 0.1 %, 2X/DAY(0.1 % CREAM 1 APPLICATION BID)
     Route: 061
     Dates: start: 20250811
  193. TRIAMCINOLONE [Concomitant]
     Active Substance: TRIAMCINOLONE
     Dosage: 0.1 %, 2X/DAY(0.1 % CREAM 1 APPLICATION BID)
     Route: 061
     Dates: start: 20250828
  194. TRIAMCINOLONE [Concomitant]
     Active Substance: TRIAMCINOLONE
     Dosage: UNK
     Route: 061
     Dates: start: 20250901
  195. ALPHA LIPOIC ACID [Concomitant]
     Active Substance: .ALPHA.-LIPOIC ACID
     Dosage: UNK
     Route: 048
     Dates: start: 20250407
  196. ALPHA LIPOIC ACID [Concomitant]
     Active Substance: .ALPHA.-LIPOIC ACID
     Dosage: UNK
     Route: 048
     Dates: start: 20250411
  197. ALPHA LIPOIC ACID [Concomitant]
     Active Substance: .ALPHA.-LIPOIC ACID
     Dosage: UNK
     Route: 048
     Dates: start: 20250416
  198. ALPHA LIPOIC ACID [Concomitant]
     Active Substance: .ALPHA.-LIPOIC ACID
     Dosage: UNK
     Route: 048
     Dates: start: 20250421
  199. ALPHA LIPOIC ACID [Concomitant]
     Active Substance: .ALPHA.-LIPOIC ACID
     Dosage: UNK
     Route: 048
     Dates: start: 20250428
  200. ALPHA LIPOIC ACID [Concomitant]
     Active Substance: .ALPHA.-LIPOIC ACID
     Dosage: 200 MG, 3X/DAY(200 MG CAPSULE, 1 TABLET PO TID)
     Route: 048
     Dates: start: 20250519
  201. ALPHA LIPOIC ACID [Concomitant]
     Active Substance: .ALPHA.-LIPOIC ACID
     Dosage: 200 MG, 3X/DAY(200 MG CAPSULE, 1 TABLET PO TID)
     Route: 048
     Dates: start: 20250609
  202. ALPHA LIPOIC ACID [Concomitant]
     Active Substance: .ALPHA.-LIPOIC ACID
     Dosage: UNK
     Route: 048
     Dates: start: 20250623
  203. ALPHA LIPOIC ACID [Concomitant]
     Active Substance: .ALPHA.-LIPOIC ACID
     Dosage: 200 MG, 3X/DAY
     Route: 048
     Dates: start: 20250630
  204. ALPHA LIPOIC ACID [Concomitant]
     Active Substance: .ALPHA.-LIPOIC ACID
     Dosage: 200 MG, 3X/DAY
     Route: 048
     Dates: start: 20250721
  205. ALPHA LIPOIC ACID [Concomitant]
     Active Substance: .ALPHA.-LIPOIC ACID
     Dosage: UNK
     Dates: start: 20250728
  206. ALPHA LIPOIC ACID [Concomitant]
     Active Substance: .ALPHA.-LIPOIC ACID
     Dosage: 200 MG, 3X/DAY
     Route: 048
     Dates: start: 20250811
  207. ALPHA LIPOIC ACID [Concomitant]
     Active Substance: .ALPHA.-LIPOIC ACID
     Dosage: 200 MG, 3X/DAY
     Route: 048
     Dates: start: 20250828
  208. ALPHA LIPOIC ACID [Concomitant]
     Active Substance: .ALPHA.-LIPOIC ACID
     Dosage: UNK
     Route: 048
     Dates: start: 20250901
  209. BUMETANIDE [Concomitant]
     Active Substance: BUMETANIDE
     Dosage: UNK
     Route: 048
     Dates: start: 20250407
  210. BUMETANIDE [Concomitant]
     Active Substance: BUMETANIDE
     Dosage: UNK
     Route: 048
     Dates: start: 20250411
  211. BUMETANIDE [Concomitant]
     Active Substance: BUMETANIDE
     Dosage: UNK
     Route: 048
     Dates: start: 20250416
  212. BUMETANIDE [Concomitant]
     Active Substance: BUMETANIDE
     Dosage: UNK
     Route: 048
     Dates: start: 20250421
  213. BUMETANIDE [Concomitant]
     Active Substance: BUMETANIDE
     Dosage: UNK
     Route: 048
     Dates: start: 20250428
  214. BUMETANIDE [Concomitant]
     Active Substance: BUMETANIDE
     Dosage: 1.0 UNK
     Route: 048
     Dates: start: 20250519
  215. BUMETANIDE [Concomitant]
     Active Substance: BUMETANIDE
     Dosage: 1.0 MG
     Route: 048
     Dates: start: 20250609
  216. BUMETANIDE [Concomitant]
     Active Substance: BUMETANIDE
     Dosage: UNK
     Route: 048
     Dates: start: 20250623
  217. BUMETANIDE [Concomitant]
     Active Substance: BUMETANIDE
     Dosage: 1.0 MG
     Route: 048
     Dates: start: 20250630
  218. BUMETANIDE [Concomitant]
     Active Substance: BUMETANIDE
     Dosage: 1.0 MG
     Route: 048
     Dates: start: 20250721
  219. BUMETANIDE [Concomitant]
     Active Substance: BUMETANIDE
     Dosage: UNK
     Route: 048
     Dates: start: 20250728
  220. BUMETANIDE [Concomitant]
     Active Substance: BUMETANIDE
     Dosage: 1.0 MG
     Dates: start: 20250811
  221. BUMETANIDE [Concomitant]
     Active Substance: BUMETANIDE
     Dosage: 1.0 MG
     Route: 048
     Dates: start: 20250828
  222. BUMETANIDE [Concomitant]
     Active Substance: BUMETANIDE
     Dosage: UNK
     Route: 048
     Dates: start: 20250901
  223. FUROSEMIDE [Concomitant]
     Active Substance: FUROSEMIDE
     Dosage: UNK
     Route: 048
     Dates: start: 20250407
  224. FUROSEMIDE [Concomitant]
     Active Substance: FUROSEMIDE
     Dosage: UNK
     Route: 048
     Dates: start: 20250411
  225. FUROSEMIDE [Concomitant]
     Active Substance: FUROSEMIDE
     Dosage: UNK
     Route: 048
     Dates: start: 20250416
  226. FUROSEMIDE [Concomitant]
     Active Substance: FUROSEMIDE
     Dosage: UNK
     Route: 048
     Dates: start: 20250421
  227. FUROSEMIDE [Concomitant]
     Active Substance: FUROSEMIDE
     Dosage: UNK
     Route: 048
     Dates: start: 20250428
  228. FUROSEMIDE [Concomitant]
     Active Substance: FUROSEMIDE
     Dosage: UNK
     Route: 048
     Dates: start: 20250519
  229. FUROSEMIDE [Concomitant]
     Active Substance: FUROSEMIDE
     Dosage: UNK
     Route: 048
     Dates: start: 20250609
  230. FUROSEMIDE [Concomitant]
     Active Substance: FUROSEMIDE
     Dosage: UNK
     Route: 048
     Dates: start: 20250623
  231. FUROSEMIDE [Concomitant]
     Active Substance: FUROSEMIDE
     Dosage: UNK
     Route: 048
     Dates: start: 20250630
  232. FUROSEMIDE [Concomitant]
     Active Substance: FUROSEMIDE
     Dosage: UNK
     Route: 048
     Dates: start: 20250721
  233. FUROSEMIDE [Concomitant]
     Active Substance: FUROSEMIDE
     Dosage: UNK
     Route: 048
     Dates: start: 20250728
  234. FUROSEMIDE [Concomitant]
     Active Substance: FUROSEMIDE
     Dosage: 20 MG
     Route: 048
     Dates: start: 20250811
  235. FUROSEMIDE [Concomitant]
     Active Substance: FUROSEMIDE
     Dosage: 20 UNK
     Route: 048
     Dates: start: 20250828
  236. FUROSEMIDE [Concomitant]
     Active Substance: FUROSEMIDE
     Dosage: UNK
     Route: 048
     Dates: start: 20250901
  237. ACETAMINOPHEN\HYDROCODONE [Concomitant]
     Active Substance: ACETAMINOPHEN\HYDROCODONE
     Dosage: UNK
     Route: 048
     Dates: start: 20250407
  238. ACETAMINOPHEN\HYDROCODONE [Concomitant]
     Active Substance: ACETAMINOPHEN\HYDROCODONE
     Dosage: UNK
     Route: 048
     Dates: start: 20250411
  239. ACETAMINOPHEN\HYDROCODONE [Concomitant]
     Active Substance: ACETAMINOPHEN\HYDROCODONE
     Dosage: UNK
     Route: 048
     Dates: start: 20250416
  240. ACETAMINOPHEN\HYDROCODONE [Concomitant]
     Active Substance: ACETAMINOPHEN\HYDROCODONE
     Dosage: UNK
     Route: 048
     Dates: start: 20250421
  241. ACETAMINOPHEN\HYDROCODONE [Concomitant]
     Active Substance: ACETAMINOPHEN\HYDROCODONE
     Dosage: UNK
     Route: 048
     Dates: start: 20250428
  242. ACETAMINOPHEN\HYDROCODONE [Concomitant]
     Active Substance: ACETAMINOPHEN\HYDROCODONE
     Dosage: 5-325 MG TABLET, 1-2 TABLET PO Q4H PRN
     Route: 048
     Dates: start: 20250519
  243. ACETAMINOPHEN\HYDROCODONE [Concomitant]
     Active Substance: ACETAMINOPHEN\HYDROCODONE
     Dosage: 5-325 MG TABLET, 1-2 TABLET PO Q4H PRN
     Route: 048
     Dates: start: 20250609
  244. ACETAMINOPHEN\HYDROCODONE [Concomitant]
     Active Substance: ACETAMINOPHEN\HYDROCODONE
     Dosage: UNK
     Route: 048
     Dates: start: 20250623
  245. ACETAMINOPHEN\HYDROCODONE [Concomitant]
     Active Substance: ACETAMINOPHEN\HYDROCODONE
     Dosage: 5-325 MG TABLET, 1-2 TABLET PO Q4H PRN
     Route: 048
     Dates: start: 20250630
  246. ACETAMINOPHEN\HYDROCODONE [Concomitant]
     Active Substance: ACETAMINOPHEN\HYDROCODONE
     Dosage: TABLET, 1-2 TABLET PO Q4H PRN
     Route: 048
     Dates: start: 20250721
  247. ACETAMINOPHEN\HYDROCODONE [Concomitant]
     Active Substance: ACETAMINOPHEN\HYDROCODONE
     Dosage: UNK
     Route: 048
     Dates: start: 20250728
  248. ACETAMINOPHEN\HYDROCODONE [Concomitant]
     Active Substance: ACETAMINOPHEN\HYDROCODONE
     Dosage: 5-325 MG TABLET, 1-2 TABLET PO Q4H PRN
     Route: 048
     Dates: start: 20250811
  249. ACETAMINOPHEN\HYDROCODONE [Concomitant]
     Active Substance: ACETAMINOPHEN\HYDROCODONE
     Dosage: 5-325 MG TABLET, 1-2 TABLET PO Q4H PRN
     Route: 048
     Dates: start: 20250828
  250. ACETAMINOPHEN\HYDROCODONE [Concomitant]
     Active Substance: ACETAMINOPHEN\HYDROCODONE
     Dosage: UNK
     Route: 048
     Dates: start: 20250901
  251. IMODIUM A-D [Concomitant]
     Active Substance: LOPERAMIDE HYDROCHLORIDE
     Dosage: UNK
     Route: 048
     Dates: start: 20250407
  252. IMODIUM A-D [Concomitant]
     Active Substance: LOPERAMIDE HYDROCHLORIDE
     Dosage: UNK
     Route: 048
     Dates: start: 20250411
  253. IMODIUM A-D [Concomitant]
     Active Substance: LOPERAMIDE HYDROCHLORIDE
     Dosage: UNK
     Route: 048
     Dates: start: 20250416
  254. IMODIUM A-D [Concomitant]
     Active Substance: LOPERAMIDE HYDROCHLORIDE
     Dosage: UNK
     Route: 048
     Dates: start: 20250421
  255. IMODIUM A-D [Concomitant]
     Active Substance: LOPERAMIDE HYDROCHLORIDE
     Dosage: UNK
     Route: 048
     Dates: start: 20250428
  256. IMODIUM A-D [Concomitant]
     Active Substance: LOPERAMIDE HYDROCHLORIDE
     Dosage: 2 MG, 4X/DAY
     Route: 048
     Dates: start: 20250519
  257. IMODIUM A-D [Concomitant]
     Active Substance: LOPERAMIDE HYDROCHLORIDE
     Dosage: 2 MG, 4X/DAY
     Route: 048
     Dates: start: 20250609
  258. IMODIUM A-D [Concomitant]
     Active Substance: LOPERAMIDE HYDROCHLORIDE
     Dosage: UNK
     Route: 048
     Dates: start: 20250623
  259. IMODIUM A-D [Concomitant]
     Active Substance: LOPERAMIDE HYDROCHLORIDE
     Dosage: 2 MG, 4X/DAY
     Route: 048
     Dates: start: 20250630
  260. IMODIUM A-D [Concomitant]
     Active Substance: LOPERAMIDE HYDROCHLORIDE
     Dosage: 2 MG, 4X/DAY
     Route: 048
     Dates: start: 20250721
  261. IMODIUM A-D [Concomitant]
     Active Substance: LOPERAMIDE HYDROCHLORIDE
     Dosage: UNK
     Route: 048
     Dates: start: 20250728
  262. IMODIUM A-D [Concomitant]
     Active Substance: LOPERAMIDE HYDROCHLORIDE
     Dosage: 2 MG, 4X/DAY
     Route: 048
     Dates: start: 20250811
  263. IMODIUM A-D [Concomitant]
     Active Substance: LOPERAMIDE HYDROCHLORIDE
     Dosage: 2 MG, 4X/DAY
     Route: 048
     Dates: start: 20250828
  264. IMODIUM A-D [Concomitant]
     Active Substance: LOPERAMIDE HYDROCHLORIDE
     Dosage: UNK
     Route: 048
     Dates: start: 20250901
  265. PROPRANOLOL [Concomitant]
     Active Substance: PROPRANOLOL HYDROCHLORIDE
     Dosage: UNK
     Route: 048
     Dates: start: 20250407
  266. PROPRANOLOL [Concomitant]
     Active Substance: PROPRANOLOL HYDROCHLORIDE
     Dosage: UNK
     Route: 048
     Dates: start: 20250411
  267. PROPRANOLOL [Concomitant]
     Active Substance: PROPRANOLOL HYDROCHLORIDE
     Dosage: UNK
     Route: 048
     Dates: start: 20250416
  268. PROPRANOLOL [Concomitant]
     Active Substance: PROPRANOLOL HYDROCHLORIDE
     Dosage: UNK
     Route: 048
     Dates: start: 20250421
  269. PROPRANOLOL [Concomitant]
     Active Substance: PROPRANOLOL HYDROCHLORIDE
     Dosage: UNK
     Route: 048
     Dates: start: 20250428
  270. PROPRANOLOL [Concomitant]
     Active Substance: PROPRANOLOL HYDROCHLORIDE
     Dosage: 10 MG, 3X/DAY
     Route: 048
     Dates: start: 20250519
  271. PROPRANOLOL [Concomitant]
     Active Substance: PROPRANOLOL HYDROCHLORIDE
     Dosage: 10 MG, 3X/DAY
     Route: 048
     Dates: start: 20250609
  272. PROPRANOLOL [Concomitant]
     Active Substance: PROPRANOLOL HYDROCHLORIDE
     Dosage: UNK
     Route: 048
     Dates: start: 20250623
  273. PROPRANOLOL [Concomitant]
     Active Substance: PROPRANOLOL HYDROCHLORIDE
     Dosage: 10 MG, 3X/DAY
     Route: 048
     Dates: start: 20250630
  274. PROPRANOLOL [Concomitant]
     Active Substance: PROPRANOLOL HYDROCHLORIDE
     Dosage: 10 MG, 3X/DAY
     Route: 048
     Dates: start: 20250721
  275. PROPRANOLOL [Concomitant]
     Active Substance: PROPRANOLOL HYDROCHLORIDE
     Dosage: UNK
     Route: 048
     Dates: start: 20250728
  276. PROPRANOLOL [Concomitant]
     Active Substance: PROPRANOLOL HYDROCHLORIDE
     Dosage: 10 MG, 3X/DAY
     Route: 048
     Dates: start: 20250811
  277. PROPRANOLOL [Concomitant]
     Active Substance: PROPRANOLOL HYDROCHLORIDE
     Dosage: 10 MG, 3X/DAY
     Route: 048
     Dates: start: 20250828
  278. PROPRANOLOL [Concomitant]
     Active Substance: PROPRANOLOL HYDROCHLORIDE
     Dosage: UNK
     Route: 048
     Dates: start: 20250901
  279. LACTULOSE [Concomitant]
     Active Substance: LACTULOSE
     Dosage: UNK
     Route: 048
     Dates: start: 20250407
  280. LACTULOSE [Concomitant]
     Active Substance: LACTULOSE
     Dosage: UNK
     Route: 048
     Dates: start: 20250411
  281. LACTULOSE [Concomitant]
     Active Substance: LACTULOSE
     Dosage: UNK
     Route: 048
     Dates: start: 20250416
  282. LACTULOSE [Concomitant]
     Active Substance: LACTULOSE
     Dosage: UNK
     Route: 048
     Dates: start: 20250421
  283. LACTULOSE [Concomitant]
     Active Substance: LACTULOSE
     Dosage: UNK
     Route: 048
     Dates: start: 20250428
  284. LACTULOSE [Concomitant]
     Active Substance: LACTULOSE
     Dosage: 10 G
     Route: 048
     Dates: start: 20250519
  285. LACTULOSE [Concomitant]
     Active Substance: LACTULOSE
     Dosage: 10.0 G
     Route: 048
     Dates: start: 20250609
  286. LACTULOSE [Concomitant]
     Active Substance: LACTULOSE
     Dosage: UNK
     Route: 048
     Dates: start: 20250623
  287. LACTULOSE [Concomitant]
     Active Substance: LACTULOSE
     Dosage: 10.0 G
     Route: 048
     Dates: start: 20250630
  288. LACTULOSE [Concomitant]
     Active Substance: LACTULOSE
     Dosage: 10 G
     Route: 048
     Dates: start: 20250721
  289. LACTULOSE [Concomitant]
     Active Substance: LACTULOSE
     Dosage: UNK
     Route: 048
     Dates: start: 20250728
  290. LACTULOSE [Concomitant]
     Active Substance: LACTULOSE
     Dosage: 10.0 G
     Route: 048
     Dates: start: 20250811
  291. LACTULOSE [Concomitant]
     Active Substance: LACTULOSE
     Dosage: 10.0 G
     Route: 048
     Dates: start: 20250828
  292. LACTULOSE [Concomitant]
     Active Substance: LACTULOSE
     Dosage: UNK
     Route: 048
     Dates: start: 20250901
  293. LIPITOR [Concomitant]
     Active Substance: ATORVASTATIN CALCIUM
     Dosage: UNK
     Route: 048
     Dates: start: 20250407
  294. LIPITOR [Concomitant]
     Active Substance: ATORVASTATIN CALCIUM
     Dosage: UNK
     Route: 048
     Dates: start: 20250411
  295. LIPITOR [Concomitant]
     Active Substance: ATORVASTATIN CALCIUM
     Dosage: UNK
     Route: 048
     Dates: start: 20250416
  296. LIPITOR [Concomitant]
     Active Substance: ATORVASTATIN CALCIUM
     Dosage: UNK
     Route: 048
     Dates: start: 20250421
  297. LIPITOR [Concomitant]
     Active Substance: ATORVASTATIN CALCIUM
     Dosage: UNK
     Route: 048
     Dates: start: 20250428
  298. LIPITOR [Concomitant]
     Active Substance: ATORVASTATIN CALCIUM
     Dosage: 40 MG, DAILY(40 MG TABLET, 1 TABLET PO QHS)
     Route: 048
     Dates: start: 20250519
  299. LIPITOR [Concomitant]
     Active Substance: ATORVASTATIN CALCIUM
     Dosage: 40 MG, DAILY (40 MG TABLET, 1 TABLET PO QHS)
     Route: 048
     Dates: start: 20250609
  300. LIPITOR [Concomitant]
     Active Substance: ATORVASTATIN CALCIUM
     Dosage: UNK
     Route: 048
     Dates: start: 20250623
  301. LIPITOR [Concomitant]
     Active Substance: ATORVASTATIN CALCIUM
     Dosage: 40 MG, DAILY (40 MG TABLET, 1 TABLET PO QHS)
     Route: 048
     Dates: start: 20250630
  302. LIPITOR [Concomitant]
     Active Substance: ATORVASTATIN CALCIUM
     Dosage: 40 MG, DAILY (40 MG TABLET, 1 TABLET PO QHS)
     Route: 048
     Dates: start: 20250721
  303. LIPITOR [Concomitant]
     Active Substance: ATORVASTATIN CALCIUM
     Dosage: UNK
     Route: 048
     Dates: start: 20250728
  304. LIPITOR [Concomitant]
     Active Substance: ATORVASTATIN CALCIUM
     Dosage: 40 MG, DAILY (40 MG TABLET, 1 TABLET PO QHS)
     Route: 048
     Dates: start: 20250811
  305. LIPITOR [Concomitant]
     Active Substance: ATORVASTATIN CALCIUM
     Dosage: 40 MG, DAILY (40 MG TABLET, 1 TABLET PO QHS)
     Route: 048
     Dates: start: 20250828
  306. LIPITOR [Concomitant]
     Active Substance: ATORVASTATIN CALCIUM
     Dosage: UNK
     Route: 048
     Dates: start: 20250901
  307. SPIRONOLACTONE [Concomitant]
     Active Substance: SPIRONOLACTONE
     Dosage: UNK
     Route: 048
     Dates: start: 20250407
  308. SPIRONOLACTONE [Concomitant]
     Active Substance: SPIRONOLACTONE
     Dosage: SPIRONOLACTON E25 MG TABLET
     Route: 048
     Dates: start: 20250411
  309. SPIRONOLACTONE [Concomitant]
     Active Substance: SPIRONOLACTONE
     Dosage: UNK
     Route: 048
     Dates: start: 20250416
  310. SPIRONOLACTONE [Concomitant]
     Active Substance: SPIRONOLACTONE
     Dosage: UNK
     Route: 048
     Dates: start: 20250421
  311. SPIRONOLACTONE [Concomitant]
     Active Substance: SPIRONOLACTONE
     Dosage: UNK
     Route: 048
     Dates: start: 20250428
  312. SPIRONOLACTONE [Concomitant]
     Active Substance: SPIRONOLACTONE
     Dosage: 25.0 MG
     Route: 048
     Dates: start: 20250519
  313. SPIRONOLACTONE [Concomitant]
     Active Substance: SPIRONOLACTONE
     Dosage: 25.0 MG
     Route: 048
     Dates: start: 20250609
  314. SPIRONOLACTONE [Concomitant]
     Active Substance: SPIRONOLACTONE
     Dosage: UNK
  315. SPIRONOLACTONE [Concomitant]
     Active Substance: SPIRONOLACTONE
     Dosage: UNK
     Route: 048
     Dates: start: 20250623
  316. SPIRONOLACTONE [Concomitant]
     Active Substance: SPIRONOLACTONE
     Dosage: 25.0 MG
     Route: 048
     Dates: start: 20250630
  317. SPIRONOLACTONE [Concomitant]
     Active Substance: SPIRONOLACTONE
     Dosage: 25.0 MG
     Route: 048
     Dates: start: 20250721
  318. SPIRONOLACTONE [Concomitant]
     Active Substance: SPIRONOLACTONE
     Dosage: UNK
     Route: 048
     Dates: start: 20250728
  319. SPIRONOLACTONE [Concomitant]
     Active Substance: SPIRONOLACTONE
     Dosage: 25.0 MG
     Route: 048
     Dates: start: 20250811
  320. SPIRONOLACTONE [Concomitant]
     Active Substance: SPIRONOLACTONE
     Dosage: 25.0 UNK
     Route: 048
     Dates: start: 20250828
  321. SPIRONOLACTONE [Concomitant]
     Active Substance: SPIRONOLACTONE
     Dosage: UNK
     Route: 048
     Dates: start: 20250901

REACTIONS (13)
  - Hepatic haemorrhage [Unknown]
  - Blood pressure decreased [Unknown]
  - Colorectal cancer metastatic [Unknown]
  - Metastases to liver [Unknown]
  - Malignant neoplasm progression [Unknown]
  - Metastasis [Unknown]
  - Chronic kidney disease [Unknown]
  - Renal impairment [Unknown]
  - Acute kidney injury [Recovered/Resolved]
  - Normocytic anaemia [Unknown]
  - Polyneuropathy [Unknown]
  - Dyspepsia [Unknown]
  - Rash [Unknown]

NARRATIVE: CASE EVENT DATE: 20250731
